FAERS Safety Report 11647527 (Version 1)
Quarter: 2015Q4

REPORT INFORMATION
  Report Type: Spontaneous
  Country: US (occurrence: None)
  Receive Date: 20151020
  Receipt Date: 20151020
  Transmission Date: 20160304
  Serious: Yes (Hospitalization, Disabling, Other)
  Sender: FDA-Public Use
  Company Number: None

PATIENT
  Age: 53 Year
  Sex: Female
  Weight: 47.63 kg

DRUGS (6)
  1. LEVOFLOXACIN 500 MG [Suspect]
     Active Substance: LEVOFLOXACIN
     Indication: SINUSITIS
     Dosage: TAKEN BY MOUTH
     Dates: start: 20130204, end: 20130214
  2. FLONASE [Concomitant]
     Active Substance: FLUTICASONE PROPIONATE
  3. LEVOFLOXACIN 500 MG [Suspect]
     Active Substance: LEVOFLOXACIN
     Indication: ANTIBIOTIC PROPHYLAXIS
     Dosage: TAKEN BY MOUTH
     Dates: start: 20130204, end: 20130214
  4. VITAMIN C [Concomitant]
     Active Substance: ASCORBIC ACID
  5. VITAMIN D3 [Concomitant]
     Active Substance: CHOLECALCIFEROL
  6. HYDROCODONE [Concomitant]
     Active Substance: HYDROCODONE

REACTIONS (34)
  - Musculoskeletal disorder [None]
  - Blood pressure fluctuation [None]
  - Alopecia [None]
  - Muscle spasms [None]
  - Insomnia [None]
  - Depersonalisation [None]
  - Depression [None]
  - Multiple chemical sensitivity [None]
  - Neuralgia [None]
  - Rash [None]
  - Unevaluable event [None]
  - Musculoskeletal pain [None]
  - Abdominal pain [None]
  - Arthralgia [None]
  - Cardiac disorder [None]
  - No therapeutic response [None]
  - Tendon pain [None]
  - Peripheral swelling [None]
  - Mental disorder [None]
  - Visual impairment [None]
  - Burning sensation [None]
  - Skin burning sensation [None]
  - Contraindication to medical treatment [None]
  - Chest pain [None]
  - Tinnitus [None]
  - Skin exfoliation [None]
  - Loss of employment [None]
  - Muscle atrophy [None]
  - Irritable bowel syndrome [None]
  - Gallbladder disorder [None]
  - Tendon rupture [None]
  - Vomiting [None]
  - Myalgia [None]
  - Anxiety [None]

NARRATIVE: CASE EVENT DATE: 20130212
